FAERS Safety Report 7360954-0 (Version None)
Quarter: 2011Q1

REPORT INFORMATION
  Report Type: 
  Country: None (occurrence: None)
  Receive Date: 20110318
  Receipt Date: 20110223
  Transmission Date: 20110831
  Serious: Yes (Other)
  Sender: FDA-Public Use
  Company Number: US-BAYER-201038776NA

PATIENT
  Sex: Female
  Weight: 71.655 kg

DRUGS (2)
  1. YASMIN [Suspect]
     Indication: ENDOMETRIOSIS
  2. YASMIN [Suspect]
     Indication: UTERINE LEIOMYOMA
     Route: 048
     Dates: start: 20060301, end: 20060413

REACTIONS (1)
  - PULMONARY EMBOLISM [None]
